FAERS Safety Report 7783417-7 (Version None)
Quarter: 2011Q3

REPORT INFORMATION
  Report Type: 
  Country: None (occurrence: None)
  Receive Date: 20110928
  Receipt Date: 20110928
  Transmission Date: 20111222
  Serious: Yes (Other)
  Sender: FDA-Public Use
  Company Number: None

PATIENT
  Age: 28 Year
  Sex: Female
  Weight: 87.089 kg

DRUGS (1)
  1. TRI-PREVIFEM [Suspect]
     Dates: start: 20110401, end: 20110722

REACTIONS (3)
  - POOR QUALITY DRUG ADMINISTERED [None]
  - PREGNANCY ON ORAL CONTRACEPTIVE [None]
  - MATERNAL EXPOSURE DURING PREGNANCY [None]
